FAERS Safety Report 8964840 (Version 2)
Quarter: 2013Q1

REPORT INFORMATION
  Report Type: Spontaneous
  Country: DK (occurrence: DK)
  Receive Date: 20121213
  Receipt Date: 20130327
  Transmission Date: 20140127
  Serious: Yes (Other)
  Sender: FDA-Public Use
  Company Number: DK-PFIZER INC-2012313365

PATIENT
  Age: 57 Year
  Sex: Female
  Weight: 55 kg

DRUGS (3)
  1. CHAMPIX [Suspect]
     Indication: SMOKING CESSATION THERAPY
     Dosage: 0.5 MG, 1X/DAY
     Route: 048
     Dates: start: 20121001, end: 20121003
  2. CHAMPIX [Suspect]
     Dosage: UNK
     Route: 048
     Dates: start: 20121004, end: 20121015
  3. RAMIPRIL [Concomitant]
     Indication: HYPERTENSION
     Dosage: UNK
     Dates: start: 201201

REACTIONS (3)
  - Acute generalised exanthematous pustulosis [Recovering/Resolving]
  - Pruritus [Unknown]
  - Skin warm [Unknown]
